FAERS Safety Report 7946271-6 (Version None)
Quarter: 2011Q4

REPORT INFORMATION
  Report Type: 
  Country: None (occurrence: None)
  Receive Date: 20111123
  Receipt Date: 20111114
  Transmission Date: 20120403
  Serious: Yes (Hospitalization)
  Sender: FDA-Public Use
  Company Number: 1107057

PATIENT
  Age: 28 Year
  Sex: Female
  Weight: 147 kg

DRUGS (2)
  1. BENADRYL [Concomitant]
  2. VANCOMYCIN HCL [Suspect]
     Indication: PRODUCT USED FOR UNKNOWN INDICATION
     Dosage: 1.5 GRAM, 1 EVERY 8 HOURS INTRAVENOUS (NOT OTHERWISE SPECIFIED)
     Route: 042

REACTIONS (5)
  - EOSINOPHILIA [None]
  - NAUSEA [None]
  - RASH [None]
  - VOMITING [None]
  - PYREXIA [None]
